FAERS Safety Report 18319595 (Version 1)
Quarter: 2020Q3

REPORT INFORMATION
  Report Type: Spontaneous
  Country: US (occurrence: US)
  Receive Date: 20200928
  Receipt Date: 20200928
  Transmission Date: 20201103
  Serious: Yes (Death, Other)
  Sender: FDA-Public Use
  Company Number: US-BRISTOL-MYERS SQUIBB COMPANY-BMS-2020-078335

PATIENT
  Age: 83 Year
  Sex: Male

DRUGS (2)
  1. YERVOY [Suspect]
     Active Substance: IPILIMUMAB
     Indication: METASTATIC MALIGNANT MELANOMA
     Dosage: 249 MILLIGRAM
     Route: 042
     Dates: start: 202006
  2. OPDIVO [Suspect]
     Active Substance: NIVOLUMAB
     Indication: METASTATIC MALIGNANT MELANOMA
     Dosage: 80 MILLIGRAM, Q3WK
     Route: 042
     Dates: start: 202006, end: 202006

REACTIONS (2)
  - Prescribed underdose [Unknown]
  - Death [Fatal]

NARRATIVE: CASE EVENT DATE: 20200920
